FAERS Safety Report 10666300 (Version 10)
Quarter: 2015Q4

REPORT INFORMATION
  Report Type: Report from Study
  Country: FI (occurrence: FI)
  Receive Date: 20141220
  Receipt Date: 20151207
  Transmission Date: 20160304
  Serious: Yes (Hospitalization, Other)
  Sender: FDA-Public Use
  Company Number: FI-ROCHE-1497431

PATIENT
  Age: 66 Year
  Sex: Female
  Weight: 65.4 kg

DRUGS (35)
  1. PARATABS [Concomitant]
     Route: 048
     Dates: start: 20150320, end: 20150320
  2. PARATABS [Concomitant]
     Route: 048
     Dates: start: 20150420, end: 20150420
  3. HISTEC [Concomitant]
     Route: 048
     Dates: start: 20141125, end: 20141125
  4. HISTEC [Concomitant]
     Route: 048
     Dates: start: 20150213, end: 20150213
  5. HISTEC [Concomitant]
     Route: 048
     Dates: start: 20150518, end: 20150518
  6. ZOFRAN [Concomitant]
     Active Substance: ONDANSETRON HYDROCHLORIDE
     Indication: PROPHYLAXIS
     Route: 048
     Dates: start: 20141125, end: 20141125
  7. OBINUTUZUMAB [Suspect]
     Active Substance: OBINUTUZUMAB
     Indication: CHRONIC LYMPHOCYTIC LEUKAEMIA
     Dosage: C1 D1 TEMPORARILY INTERRUPTED DUE TO INFUSON RELATED REACTION
     Route: 042
     Dates: start: 20141124, end: 20141124
  8. OBINUTUZUMAB [Suspect]
     Active Substance: OBINUTUZUMAB
     Route: 042
     Dates: start: 20141125, end: 20141125
  9. OBINUTUZUMAB [Suspect]
     Active Substance: OBINUTUZUMAB
     Dosage: C2 D1
     Route: 042
     Dates: start: 20141222
  10. SOLU-MEDROL [Concomitant]
     Active Substance: METHYLPREDNISOLONE SODIUM SUCCINATE
     Route: 042
     Dates: start: 20150213, end: 20150213
  11. PARATABS [Concomitant]
     Route: 048
     Dates: start: 20141222, end: 20141222
  12. HISTEC [Concomitant]
     Indication: PROPHYLAXIS
     Route: 048
     Dates: start: 20141124
  13. OBINUTUZUMAB [Suspect]
     Active Substance: OBINUTUZUMAB
     Dosage: C1 D15
     Route: 042
     Dates: start: 20141209, end: 20141209
  14. SOLU-MEDROL [Concomitant]
     Active Substance: METHYLPREDNISOLONE SODIUM SUCCINATE
     Route: 042
     Dates: start: 20150518, end: 20150518
  15. PARATABS [Concomitant]
     Route: 048
     Dates: start: 20141209, end: 20141209
  16. PARATABS [Concomitant]
     Route: 048
     Dates: start: 20141202, end: 20141202
  17. HISTEC [Concomitant]
     Route: 048
     Dates: start: 20150420, end: 20150420
  18. PARATABS [Concomitant]
     Route: 048
     Dates: start: 20141125, end: 20141125
  19. ZYLORIC [Concomitant]
     Active Substance: ALLOPURINOL
     Route: 065
     Dates: start: 20141124, end: 20150320
  20. VALTREX [Concomitant]
     Active Substance: VALACYCLOVIR HYDROCHLORIDE
     Route: 065
     Dates: start: 20141128
  21. OBINUTUZUMAB [Suspect]
     Active Substance: OBINUTUZUMAB
     Dosage: C1 D8
     Route: 042
     Dates: start: 20141202, end: 20141202
  22. HISTEC [Concomitant]
     Route: 048
     Dates: start: 20141209, end: 20141209
  23. HISTEC [Concomitant]
     Route: 048
     Dates: start: 20141222, end: 20141222
  24. SOLU-MEDROL [Concomitant]
     Active Substance: METHYLPREDNISOLONE SODIUM SUCCINATE
     Route: 042
     Dates: start: 20141125, end: 20141125
  25. SOLU-MEDROL [Concomitant]
     Active Substance: METHYLPREDNISOLONE SODIUM SUCCINATE
     Route: 042
     Dates: start: 20141209, end: 20141209
  26. SOLU-MEDROL [Concomitant]
     Active Substance: METHYLPREDNISOLONE SODIUM SUCCINATE
     Route: 042
     Dates: start: 20141222, end: 20141222
  27. PARATABS [Concomitant]
     Indication: PROPHYLAXIS
     Route: 048
     Dates: start: 20141124, end: 20141124
  28. HISTEC [Concomitant]
     Route: 048
     Dates: start: 20150320, end: 20150320
  29. PARATABS [Concomitant]
     Route: 048
     Dates: start: 20150518, end: 20150518
  30. HISTEC [Concomitant]
     Route: 048
     Dates: start: 20141202, end: 20141202
  31. SOLU-MEDROL [Concomitant]
     Active Substance: METHYLPREDNISOLONE SODIUM SUCCINATE
     Indication: PROPHYLAXIS
     Route: 042
     Dates: start: 20141124, end: 20141124
  32. SOLU-MEDROL [Concomitant]
     Active Substance: METHYLPREDNISOLONE SODIUM SUCCINATE
     Route: 042
     Dates: start: 20150320, end: 20150320
  33. SOLU-MEDROL [Concomitant]
     Active Substance: METHYLPREDNISOLONE SODIUM SUCCINATE
     Route: 042
     Dates: start: 20150420, end: 20150420
  34. PARATABS [Concomitant]
     Route: 048
     Dates: start: 20150213, end: 20150213
  35. COTRIM D.S. [Concomitant]
     Active Substance: SULFAMETHOXAZOLE\TRIMETHOPRIM
     Dosage: DAILY DOSE: 160/800MG
     Route: 065
     Dates: start: 20141128

REACTIONS (3)
  - Cytokine release syndrome [Recovered/Resolved]
  - Neutropenia [Recovered/Resolved]
  - Febrile neutropenia [Recovered/Resolved]

NARRATIVE: CASE EVENT DATE: 20141124
